APPROVED DRUG PRODUCT: POLMON
Active Ingredient: DEXCHLORPHENIRAMINE MALEATE
Strength: 2MG/5ML
Dosage Form/Route: SYRUP;ORAL
Application: A202520 | Product #001
Applicant: PHARMOBEDIENT CONSULTING LLC
Approved: Jul 16, 2018 | RLD: No | RS: Yes | Type: RX